FAERS Safety Report 15435675 (Version 1)
Quarter: 2018Q3

REPORT INFORMATION
  Report Type: Spontaneous
  Country: MW (occurrence: MW)
  Receive Date: 20180927
  Receipt Date: 20180927
  Transmission Date: 20181010
  Serious: Yes (Other)
  Sender: FDA-Public Use
  Company Number: MW-JNJFOC-20180927983

PATIENT

DRUGS (4)
  1. DOXORUBICIN HYDROCHLORIDE. [Suspect]
     Active Substance: DOXORUBICIN HYDROCHLORIDE
     Indication: PLASMABLASTIC LYMPHOMA
     Route: 065
     Dates: start: 2016
  2. CYCLOPHOSPHAMIDE. [Suspect]
     Active Substance: CYCLOPHOSPHAMIDE
     Indication: PLASMABLASTIC LYMPHOMA
     Route: 065
     Dates: start: 2016
  3. VINCRISTINE [Suspect]
     Active Substance: VINCRISTINE
     Indication: PLASMABLASTIC LYMPHOMA
     Dosage: DAY 1
     Route: 065
     Dates: start: 2016
  4. PREDNISONE. [Suspect]
     Active Substance: PREDNISONE
     Indication: PLASMABLASTIC LYMPHOMA
     Dosage: DAY 1?5
     Route: 065
     Dates: start: 2016

REACTIONS (4)
  - Neutropenia [Unknown]
  - Product use in unapproved indication [Unknown]
  - Off label use [Unknown]
  - Anaemia [Unknown]
